FAERS Safety Report 6649339-X (Version None)
Quarter: 2010Q1

REPORT INFORMATION
  Report Type: 
  Country: None (occurrence: None)
  Receive Date: 20100322
  Receipt Date: 20100311
  Transmission Date: 20100710
  Serious: Yes (Hospitalization)
  Sender: FDA-Public Use
  Company Number: 2010SP000770

PATIENT
  Age: 44 Year
  Sex: Female
  Weight: 98 kg

DRUGS (8)
  1. CICLESONIDE HFA [Suspect]
     Indication: RHINITIS PERENNIAL
     Dosage: 80 UG; INHALATION
     Route: 055
     Dates: start: 20091009
  2. LEVOTHYROXINE SODIUM [Concomitant]
  3. SIMVASTATIN [Concomitant]
  4. EPIPEN [Concomitant]
  5. IBUPROFEN [Concomitant]
  6. ALBUTEROL [Concomitant]
  7. ROBITUSSIN [Concomitant]
  8. CORTICOOL [Concomitant]

REACTIONS (2)
  - HYSTERECTOMY [None]
  - MENORRHAGIA [None]
